FAERS Safety Report 11059145 (Version 2)
Quarter: 2015Q2

REPORT INFORMATION
  Report Type: Report from Study
  Country: BR (occurrence: BR)
  Receive Date: 20150423
  Receipt Date: 20150504
  Transmission Date: 20150821
  Serious: Yes (Other)
  Sender: FDA-Public Use
  Company Number: PHHY2015BR043595

PATIENT
  Sex: Female
  Weight: 58 kg

DRUGS (1)
  1. ACLASTA [Suspect]
     Active Substance: ZOLEDRONIC ACID
     Indication: OSTEOPOROSIS
     Dosage: 5 MG, (ONCE A YEAR)
     Route: 065
     Dates: start: 2013

REACTIONS (1)
  - Presbyacusis [Not Recovered/Not Resolved]

NARRATIVE: CASE EVENT DATE: 2014
